FAERS Safety Report 6340967-8 (Version None)
Quarter: 2009Q3

REPORT INFORMATION
  Report Type: 
  Country: None (occurrence: None)
  Receive Date: 20090904
  Receipt Date: 20090804
  Transmission Date: 20100115
  Serious: No
  Sender: FDA-Public Use
  Company Number: US-BAYER-200913078BCC

PATIENT
  Age: 28 Year
  Sex: Male
  Weight: 80 kg

DRUGS (1)
  1. FINACEA [Suspect]
     Indication: ROSACEA
     Dates: start: 20090601, end: 20090731

REACTIONS (2)
  - ACNE [None]
  - ROSACEA [None]
